FAERS Safety Report 5950934-1 (Version None)
Quarter: 2008Q4

REPORT INFORMATION
  Report Type: 
  Country: None (occurrence: None)
  Receive Date: 20081110
  Receipt Date: 20071024
  Transmission Date: 20090506
  Serious: Yes (Death)
  Sender: FDA-Public Use
  Company Number: GXBR2007US02017

PATIENT
  Age: 75 Year
  Sex: Male
  Weight: 87.1 kg

DRUGS (10)
  1. AMIODARONE HCL [Suspect]
     Dosage: 200 MG, QD, ORAL
     Route: 048
     Dates: start: 20030125
  2. LASIX [Concomitant]
  3. POTASSIUM (POTASSIUM) [Concomitant]
  4. ALTACE [Concomitant]
  5. LIPITOR /NET/(ATORVASTATIN CALCIUM) [Concomitant]
  6. ISOSORBIDE(ISOSORBIDE) [Concomitant]
  7. ALLOPURINOL [Concomitant]
  8. TOPROL-XL [Concomitant]
  9. COUMADIN [Concomitant]
  10. ASPIRIN [Concomitant]

REACTIONS (10)
  - ARRHYTHMIA [None]
  - CARDIO-RESPIRATORY ARREST [None]
  - CHEST X-RAY ABNORMAL [None]
  - CONDITION AGGRAVATED [None]
  - DIZZINESS [None]
  - DYSPNOEA [None]
  - HEPATIC FAILURE [None]
  - LIBIDO DECREASED [None]
  - ORTHOPNOEA [None]
  - RENAL FAILURE ACUTE [None]
